FAERS Safety Report 7451588-8 (Version None)
Quarter: 2011Q2

REPORT INFORMATION
  Report Type: 
  Country: None (occurrence: None)
  Receive Date: 20110425
  Receipt Date: 20110409
  Transmission Date: 20111010
  Serious: Yes (Other)
  Sender: FDA-Public Use
  Company Number: AUR-APL-2011-01257

PATIENT
  Age: 86 Year
  Sex: Male
  Weight: 70.29 kg

DRUGS (2)
  1. FINASTERIDE [Suspect]
     Indication: BENIGN PROSTATIC HYPERPLASIA
     Dosage: 5MG-DAILY-ORAL
     Route: 048
     Dates: start: 20080201, end: 20110301
  2. LISINOPRIL [Concomitant]

REACTIONS (3)
  - RENAL DISORDER [None]
  - GASTRIC DISORDER [None]
  - DYSPHAGIA [None]
